FAERS Safety Report 9840014 (Version 1)
Quarter: 2014Q1

REPORT INFORMATION
  Report Type: Spontaneous
  Country: US (occurrence: None)
  Receive Date: 20140117
  Receipt Date: 20140117
  Transmission Date: 20141002
  Serious: Yes (Life-Threatening)
  Sender: FDA-Public Use
  Company Number: None

PATIENT
  Age: 23 Year
  Sex: Male
  Weight: 51.8 kg

DRUGS (1)
  1. CROFAB [Suspect]
     Indication: SNAKE BITE
     Route: 042
     Dates: start: 20130927

REACTIONS (5)
  - Pain [None]
  - Rash [None]
  - Urticaria [None]
  - Pruritus [None]
  - Local swelling [None]
